FAERS Safety Report 7863130-8 (Version None)
Quarter: 2011Q4

REPORT INFORMATION
  Report Type: 
  Country: None (occurrence: None)
  Receive Date: 20111027
  Receipt Date: 20101129
  Transmission Date: 20120403
  Serious: No
  Sender: FDA-Public Use
  Company Number: US-AMGEN-USASP2010006638

PATIENT
  Age: 51 Year
  Sex: Male

DRUGS (3)
  1. ENBREL [Suspect]
     Indication: PSORIASIS
     Dosage: UNK
     Dates: start: 20071001
  2. METHOTREXATE [Concomitant]
     Dates: start: 20070101
  3. ENBREL [Suspect]
     Indication: PSORIATIC ARTHROPATHY

REACTIONS (5)
  - PRURITUS [None]
  - BLOOD UREA INCREASED [None]
  - ERYTHEMA [None]
  - BLOOD CREATININE INCREASED [None]
  - PSORIASIS [None]
